FAERS Safety Report 4634876-X (Version None)
Quarter: 2005Q2

REPORT INFORMATION
  Report Type: 
  Country: None (occurrence: None)
  Receive Date: 20050412
  Receipt Date: 20050327
  Transmission Date: 20051028
  Serious: Yes (Hospitalization)
  Sender: FDA-Public Use
  Company Number: 2005AP01481

PATIENT
  Age: 33 Year
  Sex: Male

DRUGS (24)
  1. IRESSA [Suspect]
     Indication: OROPHARYNGEAL CANCER STAGE UNSPECIFIED
     Dosage: 250 MG DAILY PO
     Route: 048
     Dates: start: 20050113, end: 20050226
  2. IRESSA [Suspect]
     Indication: OROPHARYNGEAL CANCER STAGE UNSPECIFIED
     Dosage: 250 MG DAILY PO
     Route: 048
     Dates: start: 20050310
  3. CISPLATIN [Suspect]
     Indication: OROPHARYNGEAL CANCER STAGE UNSPECIFIED
     Dosage: 139 MG Q3WK IV
     Route: 042
     Dates: start: 20050127, end: 20050127
  4. CISPLATIN [Suspect]
     Indication: OROPHARYNGEAL CANCER STAGE UNSPECIFIED
     Dosage: 110.4 MG Q3WK IV
     Route: 042
     Dates: start: 20050217, end: 20050217
  5. RADIOTHERAPY [Suspect]
     Indication: OROPHARYNGEAL CANCER STAGE UNSPECIFIED
     Dosage: 2 DF DAILY
     Dates: start: 20050127, end: 20050226
  6. RADIOTHERAPY [Suspect]
     Indication: OROPHARYNGEAL CANCER STAGE UNSPECIFIED
     Dosage: 2 DF DAILY
     Dates: start: 20050228, end: 20050304
  7. RADIOTHERAPY [Suspect]
     Indication: OROPHARYNGEAL CANCER STAGE UNSPECIFIED
     Dosage: 2 DF DAILY
     Dates: start: 20050311, end: 20050316
  8. EMESET [Concomitant]
  9. MANNITOL [Concomitant]
  10. POTASSIUM CHLORIDE [Concomitant]
  11. SODIUM BICARBONATE [Concomitant]
  12. MOX [Concomitant]
  13. BOLEX FORTE [Concomitant]
  14. NUTRALIPID [Concomitant]
  15. T DICLOMOL [Concomitant]
  16. CALCIUM GLUCONATE [Concomitant]
  17. MORPHINE [Concomitant]
  18. DULCOLAX [Concomitant]
  19. PERINORM [Concomitant]
  20. POTKLOR [Concomitant]
  21. CIPLOX [Concomitant]
  22. ZYLORIC ^FAES^ [Concomitant]
  23. PANTOP [Concomitant]
  24. RANTAC [Concomitant]

REACTIONS (17)
  - BLOOD CREATININE INCREASED [None]
  - BLOOD UREA INCREASED [None]
  - BLOOD URIC ACID INCREASED [None]
  - DIARRHOEA [None]
  - DYSPHAGIA [None]
  - FATIGUE [None]
  - FOLLICULITIS [None]
  - GASTRITIS [None]
  - INCONTINENCE [None]
  - LOWER RESPIRATORY TRACT INFECTION [None]
  - MUCOSAL INFLAMMATION [None]
  - ORAL PAIN [None]
  - PYREXIA [None]
  - RASH [None]
  - RENAL IMPAIRMENT [None]
  - SKIN DISCOLOURATION [None]
  - THROMBOCYTOPENIA [None]
